FAERS Safety Report 14911872 (Version 1)
Quarter: 2018Q2

REPORT INFORMATION
  Report Type: Spontaneous
  Country: US (occurrence: US)
  Receive Date: 20180518
  Receipt Date: 20180518
  Transmission Date: 20180711
  Serious: No
  Sender: FDA-Public Use
  Company Number: US-JNJFOC-20180503086

PATIENT

DRUGS (1)
  1. STELARA [Suspect]
     Active Substance: USTEKINUMAB
     Indication: CROHN^S DISEASE
     Route: 042

REACTIONS (5)
  - Cough [Unknown]
  - Dyspnoea [Unknown]
  - Frequent bowel movements [Unknown]
  - Muscle fatigue [Unknown]
  - Fatigue [Unknown]
